FAERS Safety Report 9741815 (Version 1)
Quarter: 2013Q4

REPORT INFORMATION
  Report Type: Spontaneous
  Country: CL (occurrence: CL)
  Receive Date: 20131210
  Receipt Date: 20131210
  Transmission Date: 20140711
  Serious: Yes (Other)
  Sender: FDA-Public Use
  Company Number: PHHY2013CL143735

PATIENT
  Age: 28 Year
  Sex: Female

DRUGS (7)
  1. GILENYA [Suspect]
     Route: 048
  2. SUPRADYN                                /ARG/ [Concomitant]
     Dosage: 1 DF, QD
     Route: 048
  3. VIT D3 [Concomitant]
     Indication: MULTIPLE SCLEROSIS
     Dosage: 2000 IU, QD
     Route: 048
     Dates: start: 20111124
  4. NARAMIG [Concomitant]
     Indication: HEADACHE
     Route: 048
  5. EUTIROX [Concomitant]
     Indication: HYPOTHYROIDISM
     Dosage: 100 MG, QD
     Route: 048
     Dates: start: 20110929
  6. RISPERIDONA [Concomitant]
     Dosage: 1 MG/ML, UNK
     Dates: start: 2009
  7. PARACETAMOL [Concomitant]
     Indication: HEADACHE

REACTIONS (2)
  - Optic neuritis [Unknown]
  - Multiple sclerosis relapse [Unknown]
